FAERS Safety Report 4791178-9 (Version None)
Quarter: 2005Q4

REPORT INFORMATION
  Report Type: 
  Country: None (occurrence: None)
  Receive Date: 20051005
  Receipt Date: 20050919
  Transmission Date: 20060501
  Serious: Yes (Hospitalization)
  Sender: FDA-Public Use
  Company Number: FR_050907162

PATIENT
  Age: 60 Year
  Sex: Male

DRUGS (4)
  1. ZYPREXA [Suspect]
     Indication: BIPOLAR I DISORDER
     Dosage: 10 MG DAY
     Dates: start: 20041101, end: 20050701
  2. DEPAKOTE [Concomitant]
  3. TERCIAN (CYAMEMAZINE) [Concomitant]
  4. EFFEXOR [Concomitant]

REACTIONS (8)
  - COMA [None]
  - CONFUSIONAL STATE [None]
  - DEMENTIA [None]
  - DISTURBANCE IN ATTENTION [None]
  - HYPERAMMONAEMIA [None]
  - LOSS OF CONSCIOUSNESS [None]
  - MALAISE [None]
  - MUSCULAR WEAKNESS [None]
